FAERS Safety Report 25191470 (Version 1)
Quarter: 2025Q2

REPORT INFORMATION
  Report Type: Spontaneous
  Country: US (occurrence: None)
  Receive Date: 20250411
  Receipt Date: 20250411
  Transmission Date: 20250716
  Serious: Yes (Other)
  Sender: FDA-CTU
  Company Number: None

PATIENT
  Age: 68 Year
  Sex: Female
  Weight: 58.5 kg

DRUGS (15)
  1. IBANDRONATE SODIUM [Suspect]
     Active Substance: IBANDRONATE SODIUM
     Indication: Osteoporosis
     Route: 048
     Dates: start: 20241115, end: 20250315
  2. Triamcinolone Acetonide, USP 0.1% [Concomitant]
  3. Metronidazole topical cream 0.75% [Concomitant]
  4. Estradiol 0.01% Vaginal cream [Concomitant]
  5. NEBIVOLOL [Concomitant]
     Active Substance: NEBIVOLOL
  6. VITAMIN D3 [Concomitant]
     Active Substance: CHOLECALCIFEROL
  7. Centrum Men^s 50+ [Concomitant]
  8. XYLITOL [Concomitant]
     Active Substance: XYLITOL
  9. Vitamin + Mineral Supplement [Concomitant]
  10. MINERALS\VITAMINS [Concomitant]
     Active Substance: MINERALS\VITAMINS
  11. FLAXSEED [Concomitant]
     Active Substance: FLAX SEED
  12. MEMETSONE FUROATE [Concomitant]
  13. LEVOTHYROXINE [Concomitant]
     Active Substance: LEVOTHYROXINE
  14. LORATDINE [Concomitant]
  15. ORAL APPLIANCE FOR SLEEP APNEA [Concomitant]

REACTIONS (3)
  - Blood pressure increased [None]
  - Heart rate increased [None]
  - Intraocular pressure increased [None]

NARRATIVE: CASE EVENT DATE: 20250404
